FAERS Safety Report 13045575 (Version 3)
Quarter: 2017Q1

REPORT INFORMATION
  Report Type: Spontaneous
  Country: RS (occurrence: RS)
  Receive Date: 20161220
  Receipt Date: 20170122
  Transmission Date: 20170428
  Serious: Yes (Hospitalization)
  Sender: FDA-Public Use
  Company Number: PHHY2016RS171825

PATIENT
  Age: 36 Year
  Sex: Male

DRUGS (4)
  1. REMERON [Concomitant]
     Active Substance: MIRTAZAPINE
     Indication: MULTIPLE SCLEROSIS
     Dosage: 30 MG, QD (IN THE EVENING)
     Route: 065
  2. GILENYA [Suspect]
     Active Substance: FINGOLIMOD HYDROCHLORIDE
     Indication: MULTIPLE SCLEROSIS
     Dosage: UNK
     Route: 048
     Dates: start: 201410, end: 20160727
  3. VELAHIBIN [Concomitant]
     Indication: MULTIPLE SCLEROSIS
     Dosage: 37.5 MG, BID
     Route: 065
  4. VIGANTOL [Concomitant]
     Active Substance: CHOLECALCIFEROL
     Indication: MULTIPLE SCLEROSIS
     Dosage: UNK (5 DROPS AFTER LUNCH)
     Route: 048

REACTIONS (4)
  - Lymphocyte count decreased [Unknown]
  - Anti-thyroid antibody positive [Unknown]
  - Melanocytic naevus [Unknown]
  - Tinea versicolour [Unknown]
